FAERS Safety Report 25065013 (Version 2)
Quarter: 2025Q3

REPORT INFORMATION
  Report Type: Spontaneous
  Country: GB (occurrence: GB)
  Receive Date: 20250311
  Receipt Date: 20250803
  Transmission Date: 20251021
  Serious: Yes (Death, Hospitalization, Other)
  Sender: ALEXION PHARMACEUTICALS
  Company Number: GB-AstraZeneca-CH-00824218AM

PATIENT
  Sex: Male

DRUGS (1)
  1. TICAGRELOR [Suspect]
     Active Substance: TICAGRELOR
     Indication: Acute myocardial infarction
     Route: 065

REACTIONS (10)
  - Mesothelioma [Fatal]
  - Acute myocardial infarction [Unknown]
  - Diarrhoea [Unknown]
  - Malaise [Unknown]
  - Pyrexia [Unknown]
  - Platelet count increased [Unknown]
  - C-reactive protein increased [Unknown]
  - Inflammation [Unknown]
  - Illness [Unknown]
  - Life expectancy shortened [Unknown]
